FAERS Safety Report 12513660 (Version 1)
Quarter: 2016Q2

REPORT INFORMATION
  Report Type: Spontaneous
  Country: US (occurrence: None)
  Receive Date: 20160629
  Receipt Date: 20160629
  Transmission Date: 20160815
  Serious: Yes (Other)
  Sender: FDA-Public Use
  Company Number: None

PATIENT
  Age: 47 Year
  Sex: Female

DRUGS (2)
  1. POLIDOCANOL 0.5% [Suspect]
     Active Substance: POLIDOCANOL
     Indication: SCLEROTHERAPY
     Dates: start: 20160616, end: 20160616
  2. POLIDOCANOL 1% [Suspect]
     Active Substance: POLIDOCANOL
     Indication: SCLEROTHERAPY
     Dates: start: 20160616, end: 20160616

REACTIONS (7)
  - Loss of consciousness [None]
  - Cardio-respiratory arrest [None]
  - Nausea [None]
  - Dizziness [None]
  - Pulse absent [None]
  - Heart rate decreased [None]
  - Hyperhidrosis [None]

NARRATIVE: CASE EVENT DATE: 20160616
